FAERS Safety Report 23251899 (Version 8)
Quarter: 2024Q2

REPORT INFORMATION
  Report Type: Report from Study
  Country: FR (occurrence: FR)
  Receive Date: 20231201
  Receipt Date: 20240619
  Transmission Date: 20240716
  Serious: Yes (Other)
  Sender: FDA-Public Use
  Company Number: FR-GILEAD-2022-0583616

PATIENT
  Sex: Female
  Weight: 122 kg

DRUGS (40)
  1. SACITUZUMAB GOVITECAN-HZIY [Suspect]
     Active Substance: SACITUZUMAB GOVITECAN-HZIY
     Indication: Triple negative breast cancer
     Dosage: 5 MG/KG,  C9D1 + D8
     Route: 042
     Dates: start: 20220510, end: 20220517
  2. SACITUZUMAB GOVITECAN-HZIY [Suspect]
     Active Substance: SACITUZUMAB GOVITECAN-HZIY
     Dosage: 7.5 MG/KG, CYCLE 3, DAY 1,8
     Route: 042
     Dates: start: 20220125, end: 20220201
  3. SACITUZUMAB GOVITECAN-HZIY [Suspect]
     Active Substance: SACITUZUMAB GOVITECAN-HZIY
     Dosage: 7.5 MG/KG, CYCLE 2, DAY 1,8
     Route: 042
     Dates: start: 20220106, end: 20220113
  4. SACITUZUMAB GOVITECAN-HZIY [Suspect]
     Active Substance: SACITUZUMAB GOVITECAN-HZIY
     Dosage: 10 MG/KG, C1D1 + D8
     Route: 042
     Dates: start: 20211130, end: 20211207
  5. SACITUZUMAB GOVITECAN-HZIY [Suspect]
     Active Substance: SACITUZUMAB GOVITECAN-HZIY
     Dosage: 5 MG/KG
     Route: 042
     Dates: start: 20220215, end: 20220222
  6. SACITUZUMAB GOVITECAN-HZIY [Suspect]
     Active Substance: SACITUZUMAB GOVITECAN-HZIY
     Dosage: 5 MG/KG
     Route: 042
     Dates: start: 20220308, end: 20220315
  7. SACITUZUMAB GOVITECAN-HZIY [Suspect]
     Active Substance: SACITUZUMAB GOVITECAN-HZIY
     Dosage: 5 MG/KG
     Route: 042
     Dates: start: 20220329, end: 20220405
  8. SACITUZUMAB GOVITECAN-HZIY [Suspect]
     Active Substance: SACITUZUMAB GOVITECAN-HZIY
     Dosage: 5 MG/KG
     Route: 042
     Dates: start: 20220419, end: 20220426
  9. SACITUZUMAB GOVITECAN-HZIY [Suspect]
     Active Substance: SACITUZUMAB GOVITECAN-HZIY
     Dosage: 5 MG/KG
     Route: 042
     Dates: start: 20220531, end: 20220607
  10. SACITUZUMAB GOVITECAN-HZIY [Suspect]
     Active Substance: SACITUZUMAB GOVITECAN-HZIY
     Dosage: 5 MG/KG
     Route: 042
     Dates: start: 20220621, end: 20220628
  11. SACITUZUMAB GOVITECAN-HZIY [Suspect]
     Active Substance: SACITUZUMAB GOVITECAN-HZIY
     Dosage: 5 MG/KG
     Route: 042
     Dates: start: 20220712, end: 20220719
  12. SACITUZUMAB GOVITECAN-HZIY [Suspect]
     Active Substance: SACITUZUMAB GOVITECAN-HZIY
     Dosage: 5 MG/KG
     Route: 042
     Dates: start: 20220802, end: 20220809
  13. SACITUZUMAB GOVITECAN-HZIY [Suspect]
     Active Substance: SACITUZUMAB GOVITECAN-HZIY
     Dosage: 5 MG/KG
     Route: 042
     Dates: start: 20220823, end: 20220830
  14. SACITUZUMAB GOVITECAN-HZIY [Suspect]
     Active Substance: SACITUZUMAB GOVITECAN-HZIY
     Dosage: 5 MG/KG
     Route: 042
     Dates: start: 20220913, end: 20220920
  15. SACITUZUMAB GOVITECAN-HZIY [Suspect]
     Active Substance: SACITUZUMAB GOVITECAN-HZIY
     Dosage: 5 MG/KG OLU AS DAY 8 MOT DONE AT DAY 8
     Route: 042
     Dates: start: 20221011
  16. SACITUZUMAB GOVITECAN-HZIY [Suspect]
     Active Substance: SACITUZUMAB GOVITECAN-HZIY
     Dosage: 5 MG/KG
     Route: 042
     Dates: start: 20221025, end: 20221102
  17. SACITUZUMAB GOVITECAN-HZIY [Suspect]
     Active Substance: SACITUZUMAB GOVITECAN-HZIY
     Dosage: 5 MG/KG
     Route: 042
     Dates: start: 20221122, end: 20221129
  18. SACITUZUMAB GOVITECAN-HZIY [Suspect]
     Active Substance: SACITUZUMAB GOVITECAN-HZIY
     Dosage: CYCLE 15, DAY 1
     Route: 042
  19. SACITUZUMAB GOVITECAN-HZIY [Suspect]
     Active Substance: SACITUZUMAB GOVITECAN-HZIY
     Dosage: 5 MG/KG; CYCLE 18, D1, D8
     Route: 042
     Dates: start: 20221213, end: 20221220
  20. SACITUZUMAB GOVITECAN-HZIY [Suspect]
     Active Substance: SACITUZUMAB GOVITECAN-HZIY
     Dosage: 5 MG/KG; CYCLE 19, D1, D8
     Route: 042
     Dates: start: 20230110, end: 20230117
  21. SACITUZUMAB GOVITECAN-HZIY [Suspect]
     Active Substance: SACITUZUMAB GOVITECAN-HZIY
     Dosage: 5 MG/KG; CYCLE 20, D1, D8
     Route: 042
     Dates: start: 20230221, end: 20230228
  22. SACITUZUMAB GOVITECAN-HZIY [Suspect]
     Active Substance: SACITUZUMAB GOVITECAN-HZIY
     Dosage: 5 MG/KG; CYCLE 21, D1, D8
     Route: 042
     Dates: start: 20230221, end: 20230228
  23. SACITUZUMAB GOVITECAN-HZIY [Suspect]
     Active Substance: SACITUZUMAB GOVITECAN-HZIY
     Dosage: 5 MG/KG; CYCLE 22, D1, D8
     Route: 042
     Dates: start: 20230314, end: 20230321
  24. SACITUZUMAB GOVITECAN-HZIY [Suspect]
     Active Substance: SACITUZUMAB GOVITECAN-HZIY
     Dosage: 5 MG/KG; CYCLE 23, D1, D8
     Route: 042
     Dates: start: 20230411, end: 20230418
  25. SACITUZUMAB GOVITECAN-HZIY [Suspect]
     Active Substance: SACITUZUMAB GOVITECAN-HZIY
     Dosage: 5 MG/KG
     Route: 042
     Dates: start: 20230502, end: 20230509
  26. SACITUZUMAB GOVITECAN-HZIY [Suspect]
     Active Substance: SACITUZUMAB GOVITECAN-HZIY
     Dosage: 5 MG/KG, C25D1 AND C25D8
     Route: 065
     Dates: start: 20230523, end: 20230530
  27. SACITUZUMAB GOVITECAN-HZIY [Suspect]
     Active Substance: SACITUZUMAB GOVITECAN-HZIY
     Dosage: 5 MG/KG, C26D1 AND C26D8
     Route: 042
     Dates: start: 20230613, end: 20230620
  28. SACITUZUMAB GOVITECAN-HZIY [Suspect]
     Active Substance: SACITUZUMAB GOVITECAN-HZIY
     Dosage: 5 MG/KG, C27D1 AND C27D8
     Route: 042
     Dates: start: 20230725, end: 20230801
  29. SACITUZUMAB GOVITECAN-HZIY [Suspect]
     Active Substance: SACITUZUMAB GOVITECAN-HZIY
     Dosage: 5 MG/KG, C28D1 AND C28D8
     Route: 042
     Dates: start: 20230815, end: 20230822
  30. SACITUZUMAB GOVITECAN-HZIY [Suspect]
     Active Substance: SACITUZUMAB GOVITECAN-HZIY
     Dosage: 5 MG/KG, C29D1 AND C29D8
     Route: 042
     Dates: start: 20230905, end: 20230912
  31. SACITUZUMAB GOVITECAN-HZIY [Suspect]
     Active Substance: SACITUZUMAB GOVITECAN-HZIY
     Dosage: 5 MG/KG, C30D1 AND C30D8
     Route: 042
     Dates: start: 20230926, end: 20231003
  32. SACITUZUMAB GOVITECAN-HZIY [Suspect]
     Active Substance: SACITUZUMAB GOVITECAN-HZIY
     Dosage: 5 MG/KG, C31D1 AND C31D8
     Route: 042
     Dates: start: 20231017, end: 20231026
  33. SACITUZUMAB GOVITECAN-HZIY [Suspect]
     Active Substance: SACITUZUMAB GOVITECAN-HZIY
     Dosage: 5 MG/KG, CYCLE 32; D1D8
     Route: 042
     Dates: start: 20231212, end: 20231219
  34. SACITUZUMAB GOVITECAN-HZIY [Suspect]
     Active Substance: SACITUZUMAB GOVITECAN-HZIY
     Dosage: 5 MG/KG, CYCLE 33; D1D8
     Route: 042
     Dates: start: 20240102, end: 20240109
  35. SACITUZUMAB GOVITECAN-HZIY [Suspect]
     Active Substance: SACITUZUMAB GOVITECAN-HZIY
     Dosage: 5 MG/KG, CYCLE 34; D1D8
     Route: 042
     Dates: start: 20240123, end: 20240130
  36. SACITUZUMAB GOVITECAN-HZIY [Suspect]
     Active Substance: SACITUZUMAB GOVITECAN-HZIY
     Dosage: 5 MG/KG, CYCLE 35; D1D8
     Route: 042
     Dates: start: 20240213, end: 20240220
  37. SACITUZUMAB GOVITECAN-HZIY [Suspect]
     Active Substance: SACITUZUMAB GOVITECAN-HZIY
     Dosage: 5 MG/KG, CYCLE 36; D1
     Route: 042
     Dates: start: 20240305
  38. SACITUZUMAB GOVITECAN-HZIY [Suspect]
     Active Substance: SACITUZUMAB GOVITECAN-HZIY
     Dosage: 5 MG/KG, CYCLE 37; D1, D8
     Route: 042
     Dates: start: 20240326, end: 20240402
  39. SACITUZUMAB GOVITECAN-HZIY [Suspect]
     Active Substance: SACITUZUMAB GOVITECAN-HZIY
     Dosage: 5 MG/KG, C38D1 AND C38D8
     Route: 042
     Dates: start: 20240528, end: 20240604
  40. SIMVASTATIN [Concomitant]
     Active Substance: SIMVASTATIN
     Indication: Hypercholesterolaemia
     Dosage: UNK

REACTIONS (21)
  - Diarrhoea [Recovered/Resolved]
  - Disease progression [Unknown]
  - Nausea [Unknown]
  - Vomiting [Unknown]
  - Diarrhoea [Unknown]
  - Diarrhoea [Unknown]
  - Nausea [Unknown]
  - Vomiting [Unknown]
  - Cough [Unknown]
  - Bronchitis [Unknown]
  - Off label use [Unknown]
  - Off label use [Unknown]
  - Off label use [Unknown]
  - Inappropriate schedule of product administration [Unknown]
  - Off label use [Unknown]
  - Off label use [Unknown]
  - COVID-19 [Unknown]
  - Inappropriate schedule of product administration [Unknown]
  - Off label use [Unknown]
  - Inappropriate schedule of product administration [Recovered/Resolved]
  - Inappropriate schedule of product administration [Recovered/Resolved]

NARRATIVE: CASE EVENT DATE: 20211210
